FAERS Safety Report 24716833 (Version 3)
Quarter: 2025Q4

REPORT INFORMATION
  Report Type: Report from Study
  Country: EU (occurrence: EU)
  Receive Date: 20241210
  Receipt Date: 20251113
  Transmission Date: 20260117
  Serious: Yes (Hospitalization, Other)
  Sender: INSMED
  Company Number: EU-INSMED, INC.-2024-04161-FR

PATIENT
  Sex: Male
  Weight: 92 kg

DRUGS (1)
  1. ARIKAYCE [Suspect]
     Active Substance: AMIKACIN
     Indication: Atypical mycobacterial infection
     Dosage: 590 MILLIGRAM, QD
     Route: 055
     Dates: start: 20241017, end: 20250201

REACTIONS (7)
  - Dialysis [Not Recovered/Not Resolved]
  - Gastrointestinal pain [Unknown]
  - Deafness [Unknown]
  - Pharyngeal paraesthesia [Unknown]
  - Ear disorder [Unknown]
  - Dizziness [Unknown]
  - Tinnitus [Unknown]

NARRATIVE: CASE EVENT DATE: 20240101
